FAERS Safety Report 13436285 (Version 1)
Quarter: 2017Q2

REPORT INFORMATION
  Report Type: Spontaneous
  Country: CH (occurrence: CH)
  Receive Date: 20170413
  Receipt Date: 20170413
  Transmission Date: 20170830
  Serious: Yes (Death)
  Sender: FDA-Public Use
  Company Number: CH-TEVA-757928ROM

PATIENT
  Age: 80 Year
  Sex: Male
  Weight: 76 kg

DRUGS (7)
  1. AZATHIOPRINE. [Suspect]
     Active Substance: AZATHIOPRINE
     Indication: IMMUNOSUPPRESSANT DRUG THERAPY
     Route: 065
     Dates: start: 2009
  2. PREDNISONE. [Suspect]
     Active Substance: PREDNISONE
     Indication: IMMUNOSUPPRESSANT DRUG THERAPY
     Dosage: HIGH DOSE
     Route: 065
     Dates: start: 2009
  3. AMPHOTERICIN B LIPOSOMAL [Suspect]
     Active Substance: AMPHOTERICIN B
     Indication: VISCERAL LEISHMANIASIS
     Dosage: 3 MG/KG/DAY ON DAYS 1-5, 14, 21, AND WEEKLY THEREAFTER; 40 MG/KG CUMULATIVE DOSE
     Route: 065
     Dates: end: 201507
  4. METHYLPREDNISOLONE. [Suspect]
     Active Substance: METHYLPREDNISOLONE
     Indication: IMMUNOSUPPRESSANT DRUG THERAPY
     Dosage: HIGH DOSE
     Route: 065
     Dates: start: 2009
  5. PREDNISOLONE. [Suspect]
     Active Substance: PREDNISOLONE
     Indication: IMMUNOSUPPRESSANT DRUG THERAPY
     Dosage: HIGH DOSE
     Route: 065
     Dates: start: 2009
  6. CELLCEPT [Suspect]
     Active Substance: MYCOPHENOLATE MOFETIL\MYCOPHENOLATE MOFETIL HYDROCHLORIDE
     Indication: IMMUNOSUPPRESSANT DRUG THERAPY
     Route: 065
     Dates: start: 2009
  7. BUDESONIDE. [Concomitant]
     Active Substance: BUDESONIDE
     Route: 065

REACTIONS (2)
  - Visceral leishmaniasis [Fatal]
  - Treatment failure [Fatal]
